FAERS Safety Report 19595979 (Version 2)
Quarter: 2021Q3

REPORT INFORMATION
  Report Type: Spontaneous
  Country: IN (occurrence: IN)
  Receive Date: 20210722
  Receipt Date: 20210823
  Transmission Date: 20211014
  Serious: Yes (Hospitalization)
  Sender: FDA-Public Use
  Company Number: IN-MYLANLABS-2021M1044584

PATIENT
  Age: 47 Year
  Sex: Male

DRUGS (3)
  1. DIAZEPAM. [Concomitant]
     Active Substance: DIAZEPAM
     Indication: ANAESTHETIC PREMEDICATION
     Dosage: 5 MILLIGRAM
     Route: 065
  2. BUPIVACAINE. [Suspect]
     Active Substance: BUPIVACAINE
     Indication: EPIDURAL ANAESTHESIA
     Dosage: 15 MILLILITER
     Route: 008
     Dates: start: 20191126
  3. RANITIDINE. [Concomitant]
     Active Substance: RANITIDINE
     Indication: ANAESTHETIC PREMEDICATION
     Dosage: 150 MILLIGRAM
     Route: 065

REACTIONS (3)
  - Urinary incontinence [Recovered/Resolved]
  - Sensory loss [Recovered/Resolved]
  - Neurotoxicity [Recovered/Resolved]
